FAERS Safety Report 8914368 (Version 1)
Quarter: 2012Q4

REPORT INFORMATION
  Report Type: 
  Country: GB (occurrence: GB)
  Receive Date: 20121119
  Receipt Date: 20121119
  Transmission Date: 20130627
  Serious: Yes (Other)
  Sender: FDA-Public Use
  Company Number: GB-RANBAXY-2012R1-61937

PATIENT
  Age: 75 Year
  Sex: Female

DRUGS (1)
  1. SIMVASTATIN [Suspect]
     Indication: PRODUCT USED FOR UNKNOWN INDICATION
     Dosage: 40 mg, qd
     Route: 065
     Dates: start: 20120529

REACTIONS (4)
  - Abnormal behaviour [Recovered/Resolved]
  - Hallucination [Recovered/Resolved]
  - Middle insomnia [Not Recovered/Not Resolved]
  - Panic reaction [Not Recovered/Not Resolved]
